FAERS Safety Report 9733200 (Version 2)
Quarter: 2013Q4

REPORT INFORMATION
  Report Type: Report from Study
  Country: NL (occurrence: NL)
  Receive Date: 20131205
  Receipt Date: 20131217
  Transmission Date: 20140711
  Serious: Yes (Hospitalization)
  Sender: FDA-Public Use
  Company Number: PHHO2013NL015757

PATIENT
  Sex: 0

DRUGS (2)
  1. MYCOPHENOLIC ACID [Suspect]
     Indication: STEM CELL TRANSPLANT
     Dosage: 2160 MG, UNK
     Route: 048
     Dates: start: 20130405
  2. SANDIMMUN [Suspect]
     Indication: STEM CELL TRANSPLANT
     Dosage: 25 MG, 2DD
     Route: 048
     Dates: start: 20130402

REACTIONS (1)
  - Pericarditis [Not Recovered/Not Resolved]
